FAERS Safety Report 6864457-9 (Version None)
Quarter: 2010Q3

REPORT INFORMATION
  Report Type: 
  Country: None (occurrence: None)
  Receive Date: 20100721
  Receipt Date: 20080324
  Transmission Date: 20110219
  Serious: Yes (Other)
  Sender: FDA-Public Use
  Company Number: US-PFIZER INC-2008027350

PATIENT
  Sex: Female
  Weight: 83.9 kg

DRUGS (4)
  1. CHANTIX [Suspect]
     Dates: start: 20080118, end: 20080321
  2. ACTONEL [Concomitant]
  3. ALLEGRA [Concomitant]
  4. MULTI-VITAMINS [Concomitant]

REACTIONS (11)
  - CONSTIPATION [None]
  - DEPRESSION [None]
  - HOT FLUSH [None]
  - INSOMNIA [None]
  - LIVER FUNCTION TEST ABNORMAL [None]
  - MENOPAUSE [None]
  - MOOD SWINGS [None]
  - NAUSEA [None]
  - NIGHT SWEATS [None]
  - RASH [None]
  - WEIGHT INCREASED [None]
